FAERS Safety Report 5823946-6 (Version None)
Quarter: 2008Q3

REPORT INFORMATION
  Report Type: 
  Country: None (occurrence: None)
  Receive Date: 20080724
  Receipt Date: 20080710
  Transmission Date: 20090109
  Serious: Yes (Other)
  Sender: FDA-Public Use
  Company Number: 235979J08USA

PATIENT
  Age: 34 Year
  Sex: Female

DRUGS (7)
  1. REBIF [Suspect]
     Indication: MULTIPLE SCLEROSIS
     Dosage: 22 MCG, 3 IN 1 WEEKS, SUBCUTANEOUS, 22 MCG, 3 IN 1 WEEKS, SUBCUTANEOUS
     Route: 058
     Dates: start: 20080201, end: 20080621
  2. REBIF [Suspect]
     Indication: MULTIPLE SCLEROSIS
     Dosage: 22 MCG, 3 IN 1 WEEKS, SUBCUTANEOUS, 22 MCG, 3 IN 1 WEEKS, SUBCUTANEOUS
     Route: 058
     Dates: start: 20080627
  3. SINGULAIR [Concomitant]
  4. ALBUTEROL [Concomitant]
  5. ALLEGRA-D (ALLEGRA-D) [Concomitant]
  6. NASONEX [Concomitant]
  7. UNSPECIFIED OVER THE COUNTER MEDICATIONS [Concomitant]

REACTIONS (1)
  - MENINGITIS VIRAL [None]
